FAERS Safety Report 18388953 (Version 1)
Quarter: 2020Q4

REPORT INFORMATION
  Report Type: Report from Study
  Country: None (occurrence: NL)
  Receive Date: 20201016
  Receipt Date: 20201016
  Transmission Date: 20210114
  Serious: Yes (Other)
  Sender: FDA-Public Use
  Company Number: NL-ABBVIE-20K-114-3607520-00

PATIENT
  Sex: Female

DRUGS (2)
  1. DUODOPA [Suspect]
     Active Substance: CARBIDOPA\LEVODOPA
  2. DUODOPA [Suspect]
     Active Substance: CARBIDOPA\LEVODOPA
     Indication: PARKINSON^S DISEASE
     Dosage: MD: 7.5, CD: 2.8, ED: 2.0; 16 HOUR ADMINISTRATION
     Route: 050
     Dates: start: 20200921

REACTIONS (3)
  - Gastrointestinal pain [Not Recovered/Not Resolved]
  - Intestinal infarction [Recovered/Resolved]
  - Intestinal infarction [Not Recovered/Not Resolved]

NARRATIVE: CASE EVENT DATE: 2020
